FAERS Safety Report 16965226 (Version 2)
Quarter: 2019Q4

REPORT INFORMATION
  Report Type: Spontaneous
  Country: FR (occurrence: FR)
  Receive Date: 20191028
  Receipt Date: 20191029
  Transmission Date: 20200122
  Serious: Yes (Life-Threatening, Hospitalization)
  Sender: FDA-Public Use
  Company Number: FR-SA-2019SA292923

PATIENT
  Age: 66 Year
  Sex: Male
  Weight: 82 kg

DRUGS (3)
  1. CLINDAMYCIN PHOSPHATE. [Suspect]
     Active Substance: CLINDAMYCIN PHOSPHATE
     Indication: OSTEITIS
     Dosage: 1800 MG, QD
     Route: 048
     Dates: start: 20190816
  2. RIFADINE [Suspect]
     Active Substance: RIFAMPIN
     Indication: OSTEITIS
     Dosage: 900 MG, QD
     Route: 048
     Dates: start: 20190813
  3. TAVANIC [Suspect]
     Active Substance: LEVOFLOXACIN
     Indication: OSTEITIS
     Dosage: 1500 MG, QD
     Route: 048
     Dates: start: 20190813

REACTIONS (2)
  - Vitamin K deficiency [Recovering/Resolving]
  - Coagulation factor decreased [Recovering/Resolving]

NARRATIVE: CASE EVENT DATE: 20190902
